FAERS Safety Report 7526872-X (Version None)
Quarter: 2011Q2

REPORT INFORMATION
  Report Type: 
  Country: None (occurrence: None)
  Receive Date: 20110606
  Receipt Date: 20110524
  Transmission Date: 20111010
  Serious: Yes (Other)
  Sender: FDA-Public Use
  Company Number: PHHY2011AU45781

PATIENT
  Sex: Male

DRUGS (1)
  1. AFINITOR [Suspect]
     Indication: RENAL CANCER
     Dosage: 10 MG, UNK
     Route: 048
     Dates: start: 20110301, end: 20110501

REACTIONS (3)
  - NEOPLASM PROGRESSION [None]
  - CROHN'S DISEASE [None]
  - DRUG INEFFECTIVE [None]
